FAERS Safety Report 14509233 (Version 1)
Quarter: 2018Q1

REPORT INFORMATION
  Report Type: Spontaneous
  Country: US (occurrence: US)
  Receive Date: 20180209
  Receipt Date: 20180209
  Transmission Date: 20180509
  Serious: No
  Sender: FDA-Public Use
  Company Number: US-TEVA-2018-US-846950

PATIENT

DRUGS (1)
  1. NYSTATIN. [Suspect]
     Active Substance: NYSTATIN
     Indication: RASH
     Dosage: FORM STRENGTH:100000 UNITS / G
     Route: 065

REACTIONS (2)
  - Drug ineffective [Unknown]
  - Product packaging issue [Unknown]
